FAERS Safety Report 19570126 (Version 1)
Quarter: 2021Q3

REPORT INFORMATION
  Report Type: Spontaneous
  Country: CA (occurrence: CA)
  Receive Date: 20210715
  Receipt Date: 20210715
  Transmission Date: 20211014
  Serious: Yes (Life-Threatening)
  Sender: FDA-Public Use
  Company Number: CA-BAUSCH-BL-2021-023990

PATIENT
  Age: 74 Year
  Sex: Male

DRUGS (1)
  1. JUBLIA [Suspect]
     Active Substance: EFINACONAZOLE
     Indication: ONYCHOMYCOSIS
     Route: 061

REACTIONS (2)
  - Chest pain [Unknown]
  - Dyspnoea [Unknown]
